FAERS Safety Report 10128435 (Version 1)
Quarter: 2014Q2

REPORT INFORMATION
  Report Type: Spontaneous
  Country: MY (occurrence: MY)
  Receive Date: 20140428
  Receipt Date: 20140428
  Transmission Date: 20141212
  Serious: Yes (Death)
  Sender: FDA-Public Use
  Company Number: MY-ROCHE-1388894

PATIENT
  Sex: 0

DRUGS (2)
  1. MABTHERA [Suspect]
     Indication: THROMBOTIC THROMBOCYTOPENIC PURPURA
     Route: 065
  2. LAMIVUDINE [Concomitant]

REACTIONS (2)
  - Hepatitis acute [Fatal]
  - Off label use [Unknown]
